FAERS Safety Report 9692640 (Version 3)
Quarter: 2014Q1

REPORT INFORMATION
  Report Type: Spontaneous
  Country: GB (occurrence: GB)
  Receive Date: 20131118
  Receipt Date: 20140130
  Transmission Date: 20141002
  Serious: Yes (Death, Other)
  Sender: FDA-Public Use
  Company Number: PHFR2013GB006453

PATIENT
  Age: 60 Year
  Sex: Female

DRUGS (1)
  1. CLOZARIL [Suspect]
     Indication: SCHIZOPHRENIA
     Dosage: UNK UKN, UNK
     Route: 048
     Dates: start: 20070729

REACTIONS (10)
  - Gastrointestinal carcinoma [Fatal]
  - Metastases to liver [Unknown]
  - Liver function test abnormal [Unknown]
  - Electrocardiogram QT prolonged [Unknown]
  - Lower respiratory tract infection [Unknown]
  - Ascites [Unknown]
  - White blood cell count increased [Not Recovered/Not Resolved]
  - Neutrophil count increased [Not Recovered/Not Resolved]
  - Tachycardia [Unknown]
  - Platelet count increased [Unknown]
